FAERS Safety Report 6984716-9 (Version None)
Quarter: 2010Q3

REPORT INFORMATION
  Report Type: 
  Country: None (occurrence: None)
  Receive Date: 20100914
  Receipt Date: 20100914
  Transmission Date: 20110219
  Serious: Yes (Hospitalization)
  Sender: FDA-Public Use
  Company Number: None

PATIENT
  Age: 81 Year
  Sex: Male
  Weight: 65 kg

DRUGS (3)
  1. ATENOLOL [Suspect]
     Indication: HYPERTENSION
     Dosage: 100 MG EVERY DAY PO
     Route: 048
     Dates: start: 20080310, end: 20100906
  2. ATENOLOL [Suspect]
     Indication: SYNCOPE
     Dosage: 100 MG EVERY DAY PO
     Route: 048
     Dates: start: 20080310, end: 20100906
  3. NIFEDIPINE [Suspect]
     Dosage: 60 MG EVERY DAY PO
     Route: 048
     Dates: start: 20081023, end: 20100906

REACTIONS (4)
  - BRADYCARDIA [None]
  - FALL [None]
  - SICK SINUS SYNDROME [None]
  - SYNCOPE [None]
